FAERS Safety Report 9532894 (Version 1)
Quarter: 2013Q3

REPORT INFORMATION
  Report Type: Spontaneous
  Country: US (occurrence: None)
  Receive Date: 20130916
  Receipt Date: 20130916
  Transmission Date: 20140515
  Serious: Yes (Hospitalization)
  Sender: FDA-Public Use
  Company Number: 2013EXPUS00130

PATIENT
  Age: 56 Year
  Sex: Female
  Weight: 53.5 kg

DRUGS (1)
  1. EXPAREL [Suspect]
     Indication: POSTOPERATIVE ANALGESIA
     Dosage: UNKNOWN, 1X, UNKNOWN
     Dates: start: 20130826, end: 20130826

REACTIONS (6)
  - Syncope [None]
  - Blood pressure decreased [None]
  - Heart rate increased [None]
  - Procedural haemorrhage [None]
  - Haemoglobin decreased [None]
  - Haematocrit decreased [None]
